FAERS Safety Report 7782613-2 (Version None)
Quarter: 2011Q3

REPORT INFORMATION
  Report Type: 
  Country: None (occurrence: None)
  Receive Date: 20110928
  Receipt Date: 20110914
  Transmission Date: 20111222
  Serious: Yes (Other)
  Sender: FDA-Public Use
  Company Number: JP-BAYER-2011-089721

PATIENT
  Age: 61 Year
  Sex: Male

DRUGS (3)
  1. PLAVIX [Suspect]
  2. ACETYLSALICYLIC ACID SRT [Suspect]
  3. TELMISARTAN + HYDROCHLOROTHIAZIDE [BAYER] [Suspect]
     Dosage: UNK

REACTIONS (1)
  - INTERSTITIAL LUNG DISEASE [None]
